FAERS Safety Report 25235900 (Version 2)
Quarter: 2025Q3

REPORT INFORMATION
  Report Type: Spontaneous
  Country: EU (occurrence: EU)
  Receive Date: 20250424
  Receipt Date: 20250802
  Transmission Date: 20251021
  Serious: Yes (Other)
  Sender: ALEXION PHARMACEUTICALS
  Company Number: EU-PFIZER INC-202300396779

PATIENT
  Age: 53 Year
  Sex: Male

DRUGS (4)
  1. ROSUVASTATIN [Suspect]
     Active Substance: ROSUVASTATIN
  2. LORLATINIB [Suspect]
     Active Substance: LORLATINIB
     Indication: Lung adenocarcinoma
  3. ATORVASTATIN [Suspect]
     Active Substance: ATORVASTATIN
  4. SIMVASTATIN [Suspect]
     Active Substance: SIMVASTATIN

REACTIONS (7)
  - Coronary artery disease [Unknown]
  - Myalgia [Unknown]
  - Arthralgia [Unknown]
  - Hyperlipidaemia [Unknown]
  - Blood creatine phosphokinase increased [Unknown]
  - Weight increased [Unknown]
  - Glycosylated haemoglobin increased [Unknown]

NARRATIVE: CASE EVENT DATE: 20210301
